FAERS Safety Report 6429485-6 (Version None)
Quarter: 2009Q4

REPORT INFORMATION
  Report Type: 
  Country: None (occurrence: None)
  Receive Date: 20091105
  Receipt Date: 20090717
  Transmission Date: 20100525
  Serious: No
  Sender: FDA-Public Use
  Company Number: US-ABBOTT-09P-163-0586688-00

PATIENT
  Sex: Male
  Weight: 104.42 kg

DRUGS (5)
  1. KALETRA [Suspect]
     Indication: HIV INFECTION
     Dates: start: 20090703
  2. TRUVADA [Concomitant]
     Indication: HIV INFECTION
     Dates: start: 20050101, end: 20090713
  3. METFORMIN [Concomitant]
     Indication: DIABETES MELLITUS
  4. DAPSONE [Concomitant]
     Indication: RASH
     Dosage: DAILY
  5. INTELENCE [Concomitant]
     Indication: HIV INFECTION
     Dosage: DAILY

REACTIONS (5)
  - DIARRHOEA [None]
  - NAUSEA [None]
  - NERVOUSNESS [None]
  - PRURITUS [None]
  - RASH [None]
